FAERS Safety Report 13630248 (Version 1)
Quarter: 2017Q2

REPORT INFORMATION
  Report Type: Spontaneous
  Country: US (occurrence: US)
  Receive Date: 20170531
  Receipt Date: 20170531
  Transmission Date: 20170830
  Serious: No
  Sender: FDA-Public Use
  Company Number: US-ASTELLAS-1290207

PATIENT
  Sex: Female

DRUGS (6)
  1. TARCEVA [Suspect]
     Active Substance: ERLOTINIB HYDROCHLORIDE
     Indication: LUNG NEOPLASM MALIGNANT
     Route: 048
  2. TARCEVA [Suspect]
     Active Substance: ERLOTINIB HYDROCHLORIDE
     Indication: NEOPLASM MALIGNANT
     Route: 048
     Dates: start: 20130924
  3. TARCEVA [Suspect]
     Active Substance: ERLOTINIB HYDROCHLORIDE
     Indication: LUNG NEOPLASM MALIGNANT
     Route: 048
     Dates: start: 20131110
  4. TARCEVA [Suspect]
     Active Substance: ERLOTINIB HYDROCHLORIDE
     Indication: BONE CANCER
     Route: 048
     Dates: start: 20131114
  5. BENICAR [Concomitant]
     Active Substance: OLMESARTAN MEDOXOMIL
  6. TARCEVA [Suspect]
     Active Substance: ERLOTINIB HYDROCHLORIDE
     Indication: LUNG NEOPLASM MALIGNANT
     Dosage: DOSAGE:75-100 MG
     Route: 048
     Dates: start: 20131021

REACTIONS (13)
  - Diarrhoea [Not Recovered/Not Resolved]
  - Rhinorrhoea [Unknown]
  - Dry mouth [Unknown]
  - Feeling abnormal [Unknown]
  - Dry skin [Unknown]
  - Growth of eyelashes [Unknown]
  - Lacrimation increased [Unknown]
  - Alopecia [Not Recovered/Not Resolved]
  - Insomnia [Unknown]
  - Decreased appetite [Unknown]
  - Onychoclasis [Unknown]
  - Rash [Unknown]
  - Diarrhoea [Unknown]
